FAERS Safety Report 5938262-1 (Version None)
Quarter: 2008Q4

REPORT INFORMATION
  Report Type: 
  Country: None (occurrence: None)
  Receive Date: 20081031
  Receipt Date: 20081023
  Transmission Date: 20090506
  Serious: Yes (Life-Threatening)
  Sender: FDA-Public Use
  Company Number: JP-GENENTECH-267569

PATIENT
  Age: 65 Year
  Sex: Male

DRUGS (13)
  1. RITUXAN [Suspect]
     Indication: NON-HODGKIN'S LYMPHOMA
     Dosage: UNK
     Route: 042
     Dates: start: 20080701
  2. ETOPOSIDE [Suspect]
     Indication: NON-HODGKIN'S LYMPHOMA
     Dosage: UNK
     Dates: start: 20080702
  3. LENOGRASTIM [Suspect]
     Indication: NEUTROPENIA
     Dosage: UNK
     Dates: start: 20080623
  4. ADRIACIN [Concomitant]
     Indication: NON-HODGKIN'S LYMPHOMA
     Dosage: 68 MG, UNK
     Route: 042
     Dates: start: 20080618, end: 20080807
  5. ONCOVIN [Concomitant]
     Indication: NON-HODGKIN'S LYMPHOMA
     Dosage: 1.7 MG, UNK
     Route: 042
     Dates: start: 20080625, end: 20080802
  6. CYCLOPHOSPHAMIDE [Concomitant]
     Indication: NON-HODGKIN'S LYMPHOMA
     Dosage: 1360 MG, UNK
     Route: 042
     Dates: start: 20080618, end: 20080802
  7. PREDNISOLONE [Concomitant]
     Indication: NON-HODGKIN'S LYMPHOMA
     Dosage: 70 MG, UNK
     Dates: start: 20080618, end: 20080808
  8. BLEOMYCINE [Concomitant]
     Indication: NON-HODGKIN'S LYMPHOMA
     Dosage: 17 MG, UNK
     Route: 042
     Dates: start: 20080625, end: 20080802
  9. FAMOTIDINE [Concomitant]
     Indication: PROPHYLAXIS
     Dosage: 10 MG, BID
     Route: 048
     Dates: start: 20080618, end: 20080822
  10. REBAMIPIDE [Concomitant]
     Indication: PROPHYLAXIS
     Dosage: 100 MG, BID
     Route: 048
     Dates: start: 20080618, end: 20080822
  11. SULFAMETHOXAZOLE ET TRIMETHOPRIME [Concomitant]
     Indication: PROPHYLAXIS
     Dosage: 1 G, QD
     Route: 048
     Dates: start: 20080618, end: 20080822
  12. MAGNESIUM OXIDE [Concomitant]
     Indication: CONSTIPATION
     Dosage: 660 MG, TID
     Route: 048
  13. ALLOPURINOL [Concomitant]
     Indication: HYPERURICAEMIA
     Dosage: 100 MG, BID
     Route: 048
     Dates: start: 20080613, end: 20080822

REACTIONS (3)
  - ACUTE RESPIRATORY DISTRESS SYNDROME [None]
  - FEBRILE NEUTROPENIA [None]
  - INTERSTITIAL LUNG DISEASE [None]
